FAERS Safety Report 9517590 (Version 1)
Quarter: 2013Q3

REPORT INFORMATION
  Report Type: Spontaneous
  Country: US (occurrence: US)
  Receive Date: 20130912
  Receipt Date: 20130912
  Transmission Date: 20140515
  Serious: Yes (Other)
  Sender: FDA-Public Use
  Company Number: US-AMGEN-USASP2013063464

PATIENT
  Age: 20 Year
  Sex: Male

DRUGS (2)
  1. ENBREL [Suspect]
     Indication: PSORIATIC ARTHROPATHY
     Dosage: 50 MG, 2 TIMES/WK
     Route: 065
     Dates: start: 20130325
  2. ENBREL [Suspect]
     Indication: PSORIASIS

REACTIONS (3)
  - Type 2 diabetes mellitus [Recovered/Resolved]
  - Lymphoedema [Not Recovered/Not Resolved]
  - Chest pain [Not Recovered/Not Resolved]
